FAERS Safety Report 14102167 (Version 3)
Quarter: 2017Q4

REPORT INFORMATION
  Report Type: Spontaneous
  Country: US (occurrence: US)
  Receive Date: 20171018
  Receipt Date: 20171030
  Transmission Date: 20180321
  Serious: Yes (Other)
  Sender: FDA-Public Use
  Company Number: US-PFIZER INC-2017446122

PATIENT
  Age: 64 Year
  Sex: Female
  Weight: 77.11 kg

DRUGS (12)
  1. HYDROCODONE/ACETAMINOPHEN [Interacting]
     Active Substance: ACETAMINOPHEN\HYDROCODONE
     Indication: BACK PAIN
     Dosage: 2.5 DF, DAILY (1 IN THE MORNING AND 1 AT NIGHT AND 1/2 TABLET IN AFTERNOON)
     Dates: start: 20171013
  2. HYDROCODONE/ACETAMINOPHEN [Interacting]
     Active Substance: ACETAMINOPHEN\HYDROCODONE
     Indication: MUSCULOSKELETAL PAIN
     Dosage: UNK UNK, 3X/DAY [HYDROCODONE-7.5MG]-[ACETAMINOPHEN-325MG]
     Dates: start: 20170711
  3. ZANTAC [Concomitant]
     Active Substance: RANITIDINE HYDROCHLORIDE
     Indication: GASTROOESOPHAGEAL REFLUX DISEASE
     Dosage: UNK UNK, 1X/DAY (AT NIGHT)
  4. LYRICA [Interacting]
     Active Substance: PREGABALIN
     Indication: NEURALGIA
     Dosage: 50 MG, THREE TIMES A DAY
  5. ROSUVASTATIN CALCIUM. [Concomitant]
     Active Substance: ROSUVASTATIN CALCIUM
     Dosage: UNK
  6. OMEPRAZOLE. [Concomitant]
     Active Substance: OMEPRAZOLE
     Dosage: 40 MG, UNK
  7. HYOSCYAMINE. [Concomitant]
     Active Substance: HYOSCYAMINE
     Indication: GASTROOESOPHAGEAL REFLUX DISEASE
     Dosage: 0.125 MG, UNK
     Route: 060
  8. LYRICA [Suspect]
     Active Substance: PREGABALIN
     Indication: SPINAL CORD INJURY
     Dosage: 25 MG, THREE TIMES A DAY
     Route: 048
     Dates: start: 20170812
  9. ESTRADIOL. [Concomitant]
     Active Substance: ESTRADIOL
     Dosage: 0.5 MG, UNK
  10. HYOSCYAMINE. [Concomitant]
     Active Substance: HYOSCYAMINE
     Indication: FIBROMYALGIA
  11. ONDANSETRON [Concomitant]
     Active Substance: ONDANSETRON
     Indication: NAUSEA
     Dosage: 4 MG, AS NEEDED
     Route: 060
  12. LYRICA [Interacting]
     Active Substance: PREGABALIN
     Dosage: 100 MG, TWO TIMES A DAY

REACTIONS (19)
  - Lethargy [Unknown]
  - Feeling drunk [Unknown]
  - Stupor [Unknown]
  - Photopsia [Unknown]
  - Confusional state [Not Recovered/Not Resolved]
  - Dysarthria [Not Recovered/Not Resolved]
  - Drug interaction [Unknown]
  - Loss of consciousness [Unknown]
  - Palpitations [Recovered/Resolved]
  - Gait disturbance [Unknown]
  - Dizziness [Not Recovered/Not Resolved]
  - Disturbance in attention [Recovering/Resolving]
  - Blindness transient [Unknown]
  - Joint swelling [Unknown]
  - Disorientation [Unknown]
  - Body temperature increased [Recovered/Resolved]
  - Weight increased [Unknown]
  - Visual impairment [Recovered/Resolved]
  - Balance disorder [Unknown]

NARRATIVE: CASE EVENT DATE: 2017
